FAERS Safety Report 8176524-0 (Version None)
Quarter: 2012Q1

REPORT INFORMATION
  Report Type: 
  Country: None (occurrence: None)
  Receive Date: 20120301
  Receipt Date: 20120227
  Transmission Date: 20120608
  Serious: Yes (Hospitalization, Other)
  Sender: FDA-Public Use
  Company Number: US-PFIZER INC-2012051753

PATIENT
  Sex: Male
  Weight: 113 kg

DRUGS (10)
  1. NEURONTIN [Suspect]
     Dosage: 1200 MG, 3X/DAY
  2. CYMBALTA [Concomitant]
     Indication: PAIN
     Dosage: 60 MG, DAILY
  3. LYRICA [Concomitant]
     Indication: FIBROMYALGIA
  4. HYDROCODONE [Concomitant]
     Indication: PAIN
     Dosage: 10 MG, 4X/DAY
  5. LYRICA [Concomitant]
     Indication: PAIN
     Dosage: UNK
  6. IBUPROFEN [Concomitant]
     Indication: PAIN
     Dosage: 800 MG, 2X/DAY
  7. CYMBALTA [Concomitant]
     Indication: FIBROMYALGIA
  8. HYDROCODONE [Concomitant]
     Indication: FIBROMYALGIA
  9. NEURONTIN [Suspect]
     Indication: FIBROMYALGIA
     Dosage: 600 MG, 3X/DAY
     Dates: start: 20101001
  10. IBUPROFEN [Concomitant]
     Indication: FIBROMYALGIA

REACTIONS (8)
  - PAIN [None]
  - ARTHRALGIA [None]
  - MUSCULOSKELETAL STIFFNESS [None]
  - WITHDRAWAL SYNDROME [None]
  - MOOD SWINGS [None]
  - HEADACHE [None]
  - VISION BLURRED [None]
  - DEPRESSED MOOD [None]
